FAERS Safety Report 4933071-4 (Version None)
Quarter: 2006Q1

REPORT INFORMATION
  Report Type: 
  Country: None (occurrence: None)
  Receive Date: 20060302
  Receipt Date: 20060302
  Transmission Date: 20060701
  Serious: Yes (Hospitalization)
  Sender: FDA-Public Use
  Company Number: None

PATIENT
  Age: 93 Year
  Sex: Female

DRUGS (1)
  1. WARFARIN 2MG AND 3 MG [Suspect]
     Indication: ATRIAL FIBRILLATION
     Dosage: 2MG AND 3 MG ALTERNATING DAYS PO
     Route: 048

REACTIONS (5)
  - HAEMATOMA [None]
  - HAEMOGLOBIN DECREASED [None]
  - INTERNATIONAL NORMALISED RATIO INCREASED [None]
  - LIMB INJURY [None]
  - OEDEMA PERIPHERAL [None]
